FAERS Safety Report 19268785 (Version 2)
Quarter: 2021Q2

REPORT INFORMATION
  Report Type: Spontaneous
  Country: US (occurrence: US)
  Receive Date: 20210517
  Receipt Date: 20210603
  Transmission Date: 20210717
  Serious: Yes (Other)
  Sender: FDA-Public Use
  Company Number: US-009507513-2105USA002551

PATIENT
  Age: 76 Year
  Sex: Female

DRUGS (4)
  1. KEYTRUDA [Suspect]
     Active Substance: PEMBROLIZUMAB
     Indication: LUNG CANCER METASTATIC
     Dosage: EVERY THREE WEEKS
     Route: 042
     Dates: start: 201810, end: 202006
  2. KEYTRUDA [Suspect]
     Active Substance: PEMBROLIZUMAB
     Dosage: DOUBLE, EVERY 6 WEEKS
     Route: 042
     Dates: start: 2020, end: 202009
  3. POLYMYXIN B SULFATE. [Concomitant]
     Active Substance: POLYMYXIN B SULFATE
     Dosage: UNK UNK, QD
  4. DUREZOL [Concomitant]
     Active Substance: DIFLUPREDNATE

REACTIONS (7)
  - Eye infection [Unknown]
  - Eye infection [Not Recovered/Not Resolved]
  - Eye infection staphylococcal [Unknown]
  - Eye haemorrhage [Unknown]
  - Vision blurred [Unknown]
  - Eye disorder [Unknown]
  - Eye inflammation [Unknown]

NARRATIVE: CASE EVENT DATE: 2020
